FAERS Safety Report 6271720-1 (Version None)
Quarter: 2009Q3

REPORT INFORMATION
  Report Type: 
  Country: None (occurrence: None)
  Receive Date: 20090717
  Receipt Date: 20090706
  Transmission Date: 20100115
  Serious: Yes (Hospitalization)
  Sender: FDA-Public Use
  Company Number: IE-ELI_LILLY_AND_COMPANY-IE200907001393

PATIENT
  Age: 64 Year
  Sex: Female

DRUGS (4)
  1. ALIMTA [Suspect]
     Dates: start: 20090304
  2. DEXAMETHASONE [Concomitant]
     Indication: PROPHYLAXIS
  3. FOLIC ACID [Concomitant]
     Indication: SUPPLEMENTATION THERAPY
  4. VITAMIN B-12 [Concomitant]
     Indication: SUPPLEMENTATION THERAPY

REACTIONS (1)
  - TOXIC EPIDERMAL NECROLYSIS [None]
